FAERS Safety Report 9282737 (Version 3)
Quarter: 2013Q2

REPORT INFORMATION
  Report Type: Spontaneous
  Country: US (occurrence: None)
  Receive Date: 20101119
  Receipt Date: 20130419
  Transmission Date: 20140414
  Serious: Yes (Hospitalization)
  Sender: FDA-Public Use
  Company Number: 54973 RSAE102810TG-001

PATIENT
  Age: 5 Month
  Sex: Male
  Weight: 9.07 kg

DRUGS (1)
  1. HYLAND^S TEETHING TABLETS [Suspect]
     Indication: TEETHING
     Dosage: 3  TABS  1-2  TIMES  /  DAY

REACTIONS (2)
  - Convulsion [None]
  - Pyrexia [None]
